FAERS Safety Report 6150274-4 (Version None)
Quarter: 2009Q2

REPORT INFORMATION
  Report Type: 
  Country: None (occurrence: None)
  Receive Date: 20090408
  Receipt Date: 20090408
  Transmission Date: 20091009
  Serious: Yes (Hospitalization)
  Sender: FDA-Public Use
  Company Number: None

PATIENT
  Sex: Male
  Weight: 110.9 kg

DRUGS (1)
  1. CISPLATIN [Suspect]
     Dosage: 200 MG
     Dates: end: 20090217

REACTIONS (15)
  - ASCITES [None]
  - AZOTAEMIA [None]
  - ENTEROBACTER INFECTION [None]
  - ENTEROCOCCAL INFECTION [None]
  - HAEMOLYSIS [None]
  - HYPERURICAEMIA [None]
  - HYPOVOLAEMIA [None]
  - PERITONEAL INFECTION [None]
  - PLEURAL EFFUSION [None]
  - RENAL FAILURE ACUTE [None]
  - RENAL TUBULAR DISORDER [None]
  - THERAPEUTIC AGENT TOXICITY [None]
  - THROMBOCYTOPENIC PURPURA [None]
  - TUMOUR LYSIS SYNDROME [None]
  - WEIGHT INCREASED [None]
